FAERS Safety Report 18522070 (Version 1)
Quarter: 2020Q4

REPORT INFORMATION
  Report Type: Spontaneous
  Country: GB (occurrence: GB)
  Receive Date: 20201119
  Receipt Date: 20201119
  Transmission Date: 20210114
  Serious: Yes (Other)
  Sender: FDA-Public Use
  Company Number: GB-NOVOPROD-766270

PATIENT
  Age: 59 Year
  Sex: Male
  Weight: 78.7 kg

DRUGS (6)
  1. LISINOPRIL. [Concomitant]
     Active Substance: LISINOPRIL
     Dosage: UNK
     Route: 065
  2. OZEMPIC [Suspect]
     Active Substance: SEMAGLUTIDE
     Indication: GLYCOSYLATED HAEMOGLOBIN INCREASED
     Dosage: 0.25 MG
     Route: 051
     Dates: start: 20200905, end: 20201003
  3. ROSUVASTATIN. [Concomitant]
     Active Substance: ROSUVASTATIN
     Dosage: UNK
     Route: 065
  4. OZEMPIC [Suspect]
     Active Substance: SEMAGLUTIDE
     Indication: GLYCOSYLATED HAEMOGLOBIN INCREASED
     Dosage: 0.5 MG
     Route: 051
     Dates: start: 20201004
  5. SUKKARTO [Concomitant]
     Active Substance: METFORMIN HYDROCHLORIDE
     Dosage: UNK
     Route: 065
  6. DAPAGLIFLOZIN. [Concomitant]
     Active Substance: DAPAGLIFLOZIN
     Dosage: UNK
     Route: 065

REACTIONS (1)
  - Taste disorder [Not Recovered/Not Resolved]
